FAERS Safety Report 5813380-7 (Version None)
Quarter: 2008Q3

REPORT INFORMATION
  Report Type: 
  Country: None (occurrence: None)
  Receive Date: 20080714
  Receipt Date: 20080707
  Transmission Date: 20090109
  Serious: Yes (Death, Hospitalization)
  Sender: FDA-Public Use
  Company Number: 2008AL007985

PATIENT
  Sex: Female
  Weight: 74.8435 kg

DRUGS (1)
  1. DIGOXIN [Suspect]
     Dosage: 0.25MG, TID, PO
     Route: 048

REACTIONS (3)
  - GAIT DISTURBANCE [None]
  - MYOCARDIAL INFARCTION [None]
  - VOMITING [None]
